FAERS Safety Report 24023226 (Version 2)
Quarter: 2024Q2

REPORT INFORMATION
  Report Type: Spontaneous
  Country: IN (occurrence: IN)
  Receive Date: 20240627
  Receipt Date: 20240627
  Transmission Date: 20240715
  Serious: No
  Sender: FDA-Public Use
  Company Number: IN-ROCHE-3562914

PATIENT
  Age: 68 Year
  Sex: Male

DRUGS (3)
  1. VABYSMO [Suspect]
     Active Substance: FARICIMAB\FARICIMAB-SVOA
     Indication: Diabetic retinal oedema
     Dosage: SECOND INFUSION DATE FOR LEFT EYE: 21/MAR/2024 AND 03/JUN/2024
     Route: 050
     Dates: start: 20240214
  2. VABYSMO [Suspect]
     Active Substance: FARICIMAB\FARICIMAB-SVOA
     Dosage: SECOND INFUSION DATE FOR RIGHT EYE: 22-MAR-2024
     Route: 050
     Dates: start: 20240215
  3. VABYSMO [Suspect]
     Active Substance: FARICIMAB\FARICIMAB-SVOA
     Route: 050

REACTIONS (2)
  - Off label use [Unknown]
  - No adverse event [Unknown]
